FAERS Safety Report 14580518 (Version 1)
Quarter: 2018Q1

REPORT INFORMATION
  Report Type: Spontaneous
  Country: US (occurrence: US)
  Receive Date: 20180228
  Receipt Date: 20180228
  Transmission Date: 20180509
  Serious: No
  Sender: FDA-Public Use
  Company Number: US-INSYS THERAPEUTICS, INC-INS201709-000543

PATIENT
  Sex: Female
  Weight: 86.13 kg

DRUGS (2)
  1. SUBSYS [Suspect]
     Active Substance: FENTANYL
     Indication: BREAKTHROUGH PAIN
     Route: 060
     Dates: end: 20170825
  2. FENTANYL TRANSDERMAL SYSTEM [Suspect]
     Active Substance: FENTANYL

REACTIONS (5)
  - Drug withdrawal syndrome [Unknown]
  - Blood pressure increased [Unknown]
  - Exposure during pregnancy [Unknown]
  - Heart rate increased [Unknown]
  - Panic reaction [Recovering/Resolving]
